FAERS Safety Report 15596614 (Version 3)
Quarter: 2018Q4

REPORT INFORMATION
  Report Type: Report from Study
  Country: US (occurrence: US)
  Receive Date: 20181107
  Receipt Date: 20181117
  Transmission Date: 20190205
  Serious: Yes (Other)
  Sender: FDA-Public Use
  Company Number: US-TEVA-2018-US-972704

PATIENT
  Age: 22 Year
  Sex: Male

DRUGS (3)
  1. TACROLIMUS. [Suspect]
     Active Substance: TACROLIMUS
     Indication: DERMATITIS ATOPIC
     Dosage: .3 PERCENT DAILY; 0.1% 3 TIMES A DAY
     Route: 065
  2. TRIAMCINOLONE [Suspect]
     Active Substance: TRIAMCINOLONE
     Indication: DERMATITIS ATOPIC
     Route: 061
  3. MOMETASONE [Suspect]
     Active Substance: MOMETASONE
     Indication: DERMATITIS ATOPIC
     Route: 061

REACTIONS (5)
  - Rash erythematous [Recovering/Resolving]
  - Eczema [Recovering/Resolving]
  - Drug ineffective [Unknown]
  - Skin plaque [Recovering/Resolving]
  - Steroid withdrawal syndrome [Recovering/Resolving]
